FAERS Safety Report 10033113 (Version 1)
Quarter: 2014Q1

REPORT INFORMATION
  Report Type: Report from Study
  Country: US (occurrence: US)
  Receive Date: 20140324
  Receipt Date: 20140324
  Transmission Date: 20141002
  Serious: Yes (Hospitalization, Other)
  Sender: FDA-Public Use
  Company Number: US-ABBVIE-14P-163-1213247-00

PATIENT
  Sex: Male
  Weight: 72.64 kg

DRUGS (20)
  1. KALETRA 200/50 [Suspect]
     Indication: HIV INFECTION
     Dates: start: 1999
  2. TRUVADA [Concomitant]
     Indication: HIV INFECTION
  3. DAPSONE [Concomitant]
     Indication: LUNG INFECTION
  4. DAPSONE [Concomitant]
     Indication: PROPHYLAXIS
  5. DAPSONE [Concomitant]
     Indication: HIV INFECTION
  6. OMEPRAZOLE [Concomitant]
     Indication: GASTROOESOPHAGEAL REFLUX DISEASE
  7. METOPROLOL [Concomitant]
     Indication: HYPERTENSION
  8. AMLODIPINE [Concomitant]
     Indication: HYPERTENSION
  9. PRAVASTATIN [Concomitant]
     Indication: BLOOD CHOLESTEROL INCREASED
  10. PLAVIX [Concomitant]
     Indication: PRODUCT USED FOR UNKNOWN INDICATION
  11. ERGOCALCIFEROL [Concomitant]
     Indication: PRODUCT USED FOR UNKNOWN INDICATION
  12. BABY ASPIRIN [Concomitant]
     Indication: PRODUCT USED FOR UNKNOWN INDICATION
  13. CETRIZINE [Concomitant]
     Indication: PRODUCT USED FOR UNKNOWN INDICATION
  14. VITAMIN B12 [Concomitant]
     Indication: PRODUCT USED FOR UNKNOWN INDICATION
     Route: 030
  15. TESTOSTERONE [Concomitant]
     Indication: PRODUCT USED FOR UNKNOWN INDICATION
     Route: 050
  16. VITAMIN E [Concomitant]
     Indication: PRODUCT USED FOR UNKNOWN INDICATION
  17. FISH OIL [Concomitant]
     Indication: PRODUCT USED FOR UNKNOWN INDICATION
  18. FLUCONAZOLE [Concomitant]
     Indication: PRODUCT USED FOR UNKNOWN INDICATION
  19. MORPHINE [Concomitant]
     Indication: PRODUCT USED FOR UNKNOWN INDICATION
  20. HYDROMORPHONE [Concomitant]
     Indication: PRODUCT USED FOR UNKNOWN INDICATION

REACTIONS (18)
  - Osteomyelitis [Not Recovered/Not Resolved]
  - Blood pressure inadequately controlled [Unknown]
  - Papilloma viral infection [Unknown]
  - Papilloma viral infection [Unknown]
  - Papilloma viral infection [Recovered/Resolved]
  - Convulsion [Not Recovered/Not Resolved]
  - Lung neoplasm malignant [Recovered/Resolved]
  - Tongue neoplasm malignant stage unspecified [Recovered/Resolved]
  - Skin cancer [Recovered/Resolved]
  - Renal disorder [Recovered/Resolved]
  - Stent-graft endoleak [Recovered/Resolved]
  - Aortic aneurysm [Recovered/Resolved]
  - Osteonecrosis of jaw [Not Recovered/Not Resolved]
  - Neck pain [Unknown]
  - Back pain [Unknown]
  - Decreased appetite [Not Recovered/Not Resolved]
  - Weight decreased [Not Recovered/Not Resolved]
  - Glossodynia [Unknown]
